FAERS Safety Report 17162800 (Version 1)
Quarter: 2019Q4

REPORT INFORMATION
  Report Type: Spontaneous
  Country: DE (occurrence: DE)
  Receive Date: 20191217
  Receipt Date: 20191217
  Transmission Date: 20200122
  Serious: Yes (Life-Threatening, Hospitalization)
  Sender: FDA-Public Use
  Company Number: DE-ACCORD-165837

PATIENT
  Age: 92 Year
  Sex: Female

DRUGS (12)
  1. RAMIPRIL. [Suspect]
     Active Substance: RAMIPRIL
     Indication: PRODUCT USED FOR UNKNOWN INDICATION
     Dosage: 5 MG, ACCIDENTAL INGESTION ON 15.10.2017
     Dates: start: 20171015, end: 20171015
  2. METOPROLOL. [Suspect]
     Active Substance: METOPROLOL
     Indication: PRODUCT USED FOR UNKNOWN INDICATION
     Dosage: 95 MG, ACCIDENTAL INGESTION ON 15.10.2017
     Dates: start: 20171015, end: 20171015
  3. CATAPRESAN [Suspect]
     Active Substance: CLONIDINE
     Indication: PRODUCT USED FOR UNKNOWN INDICATION
     Dosage: 75 MG, ACCIDENTAL INGESTION ON 15.07.2017
     Dates: start: 20170715, end: 20170715
  4. EBRANTIL [Suspect]
     Active Substance: URAPIDIL
     Indication: PRODUCT USED FOR UNKNOWN INDICATION
     Dosage: 60 MG, ACCIDENTAL INGESTION ON 15.10.2017
     Dates: start: 20171015, end: 20171015
  5. OMEPRAZOLE. [Concomitant]
     Active Substance: OMEPRAZOLE
     Dosage: NK MG, 1-0-0-0
  6. METOPROLOL. [Suspect]
     Active Substance: METOPROLOL
     Dosage: 100 MG, 1-0-1-0
  7. REMESTAN [Suspect]
     Active Substance: TEMAZEPAM
     Indication: PRODUCT USED FOR UNKNOWN INDICATION
     Dosage: 20 MG, ACCIDENTAL INGESTION ON 15
  8. SPASMEX [Concomitant]
     Dosage: 15 MG, 2-0-1-0
  9. TORASEMIDE [Concomitant]
     Active Substance: TORSEMIDE
     Dosage: 10 MG, 1-0-0-0
  10. ACETYLSALICYLIC ACID [Concomitant]
     Active Substance: ASPIRIN
     Dosage: 100 MG, 0-1-0-0
  11. LISINOPRIL. [Concomitant]
     Active Substance: LISINOPRIL
     Dosage: NK MG, 0-1-0-0
  12. LERCANIDIPINE [Concomitant]
     Active Substance: LERCANIDIPINE
     Dosage: 10 MG, 0-1-0-0

REACTIONS (2)
  - Wrong product administered [Unknown]
  - Hypotension [Unknown]

NARRATIVE: CASE EVENT DATE: 20171014
